FAERS Safety Report 26126975 (Version 1)
Quarter: 2025Q4

REPORT INFORMATION
  Report Type: Spontaneous
  Country: EU (occurrence: EU)
  Receive Date: 20251205
  Receipt Date: 20251205
  Transmission Date: 20260117
  Serious: Yes (Other)
  Sender: ADMA BIOLOGICS
  Company Number: EU-ADMA BIOLOGICS INC.-IT-2025ADM000376

PATIENT

DRUGS (6)
  1. HUMAN IMMUNOGLOBULIN G [Suspect]
     Active Substance: HUMAN IMMUNOGLOBULIN G
     Indication: Infection prophylaxis
     Dosage: 200 MG/KG, WEEKLY, DAY 0 (TIME OF TRANSPLANTATION), DAY 1-7-14 AND 21 AFTER TRANSPLANTATION
     Route: 042
  2. HUMAN IMMUNOGLOBULIN G [Suspect]
     Active Substance: HUMAN IMMUNOGLOBULIN G
     Dosage: 200 MG/KG, EVERY 3WEEKS FOR 3 MONTHS
     Route: 042
  3. HUMAN IMMUNOGLOBULIN G [Suspect]
     Active Substance: HUMAN IMMUNOGLOBULIN G
     Dosage: 200 MG/KG, MONTHLY UNTIL THE SIXTH MONTH AFTER TRANSPLANTATION
     Route: 042
  4. BASILIXIMAB [Concomitant]
     Active Substance: BASILIXIMAB
     Indication: Immune tolerance induction
     Dosage: UNK, UNK
     Route: 065
  5. THYMOGLOBULINE [Concomitant]
     Active Substance: LAPINE T-LYMPHOCYTE IMMUNE GLOBULIN
     Indication: Immune tolerance induction
     Dosage: UNK, UNK
     Route: 065
  6. MYCOPHENOLATE MOFETIL [Concomitant]
     Active Substance: MYCOPHENOLATE MOFETIL
     Indication: Product used for unknown indication
     Dosage: UNK, UNK
     Route: 065

REACTIONS (2)
  - Post transplant lymphoproliferative disorder [Unknown]
  - Off label use [Unknown]
